FAERS Safety Report 6909304-1 (Version None)
Quarter: 2010Q3

REPORT INFORMATION
  Report Type: 
  Country: None (occurrence: None)
  Receive Date: 20100805
  Receipt Date: 20100802
  Transmission Date: 20110219
  Serious: Yes (Hospitalization)
  Sender: FDA-Public Use
  Company Number: CO-GENZYME-CERZ-1001424

PATIENT

DRUGS (1)
  1. CEREZYME [Suspect]
     Indication: GAUCHER'S DISEASE
     Dosage: UNK
     Route: 042
     Dates: end: 20100401

REACTIONS (3)
  - NERVOUSNESS [None]
  - PERSECUTORY DELUSION [None]
  - SUICIDE ATTEMPT [None]
